FAERS Safety Report 7941105-8 (Version None)
Quarter: 2011Q4

REPORT INFORMATION
  Report Type: 
  Country: None (occurrence: None)
  Receive Date: 20111114
  Receipt Date: 20110707
  Transmission Date: 20120403
  Serious: Yes (Hospitalization)
  Sender: FDA-Public Use
  Company Number: 2011S1000476

PATIENT
  Age: 65 Year
  Sex: Female
  Weight: 84.4 kg

DRUGS (1)
  1. CUBICIN [Suspect]
     Indication: STAPHYLOCOCCAL BACTERAEMIA
     Dosage: 6 MG/KG; Q48H; IV
     Route: 042
     Dates: start: 20100923, end: 20101011

REACTIONS (1)
  - RHABDOMYOLYSIS [None]
